FAERS Safety Report 6275963-2 (Version None)
Quarter: 2009Q3

REPORT INFORMATION
  Report Type: 
  Country: None (occurrence: None)
  Receive Date: 20090720
  Receipt Date: 20090708
  Transmission Date: 20100115
  Serious: Yes (Other)
  Sender: FDA-Public Use
  Company Number: 323819

PATIENT

DRUGS (9)
  1. CYTARABINE [Suspect]
     Indication: DISEASE RECURRENCE
     Dosage: 1 G/M2 (2 HOURS FOR 5 CONSECUTIVE DAYS)
  2. CYTARABINE [Suspect]
     Indication: HISTIOCYTOSIS
     Dosage: 1 G/M2 (2 HOURS FOR 5 CONSECUTIVE DAYS)
  3. CLADRIBINE [Suspect]
     Indication: DISEASE RECURRENCE
     Dosage: 8.9 MG/M2, INTRAVENOUS DRIP
     Route: 041
  4. CLADRIBINE [Suspect]
     Indication: HISTIOCYTOSIS
     Dosage: 8.9 MG/M2, INTRAVENOUS DRIP
     Route: 041
  5. NEUPOGEN [Concomitant]
  6. RED BLOOD CELLS [Concomitant]
  7. PLATELETS [Concomitant]
  8. IMMUNE GLOBULIN NOS [Concomitant]
  9. PENTAMIDINE ISETHIONATE [Concomitant]

REACTIONS (9)
  - BACTERAEMIA [None]
  - CD4 LYMPHOCYTES DECREASED [None]
  - CD4/CD8 RATIO DECREASED [None]
  - DISEASE RECURRENCE [None]
  - MORAXELLA INFECTION [None]
  - NO THERAPEUTIC RESPONSE [None]
  - PANCYTOPENIA [None]
  - PYREXIA [None]
  - STREPTOCOCCAL INFECTION [None]
